FAERS Safety Report 25589298 (Version 2)
Quarter: 2025Q3

REPORT INFORMATION
  Report Type: Spontaneous
  Country: JP (occurrence: JP)
  Receive Date: 20250722
  Receipt Date: 20250725
  Transmission Date: 20251020
  Serious: Yes (Other)
  Sender: TAKEDA
  Company Number: JP-JNJFOC-20250724369

PATIENT
  Age: 4 Decade
  Sex: Female

DRUGS (14)
  1. VELCADE [Suspect]
     Active Substance: BORTEZOMIB
     Indication: Plasmacytoma
  2. VELCADE [Suspect]
     Active Substance: BORTEZOMIB
  3. DARATUMUMAB [Suspect]
     Active Substance: DARATUMUMAB
     Indication: Plasmacytoma
  4. DEXAMETHASONE [Concomitant]
     Active Substance: DEXAMETHASONE
     Indication: Plasmacytoma
  5. DEXAMETHASONE [Concomitant]
     Active Substance: DEXAMETHASONE
  6. DEXAMETHASONE [Concomitant]
     Active Substance: DEXAMETHASONE
  7. CARFILZOMIB [Concomitant]
     Active Substance: CARFILZOMIB
     Indication: Plasmacytoma
  8. LENALIDOMIDE [Concomitant]
     Active Substance: LENALIDOMIDE
     Indication: Plasmacytoma
  9. THALIDOMIDE [Concomitant]
     Active Substance: THALIDOMIDE
     Indication: Plasmacytoma
  10. CISPLATIN [Concomitant]
     Active Substance: CISPLATIN
     Indication: Plasmacytoma
  11. DOXORUBICIN HYDROCHLORIDE [Concomitant]
     Active Substance: DOXORUBICIN HYDROCHLORIDE
     Indication: Plasmacytoma
  12. CYCLOPHOSPHAMIDE [Concomitant]
     Active Substance: CYCLOPHOSPHAMIDE
     Indication: Plasmacytoma
  13. ETOPOSIDE [Concomitant]
     Active Substance: ETOPOSIDE
     Indication: Plasmacytoma
  14. ALKERAN [Concomitant]
     Active Substance: MELPHALAN
     Indication: Plasmacytoma

REACTIONS (2)
  - Drug ineffective [Unknown]
  - Therapeutic product effect incomplete [Unknown]
